FAERS Safety Report 6726399-9 (Version None)
Quarter: 2010Q2

REPORT INFORMATION
  Report Type: 
  Country: None (occurrence: None)
  Receive Date: 20100514
  Receipt Date: 20100511
  Transmission Date: 20101027
  Serious: Yes (Life-Threatening, Hospitalization)
  Sender: FDA-Public Use
  Company Number: B0652534A

PATIENT
  Age: 68 Year
  Sex: Female

DRUGS (3)
  1. PAXIL [Suspect]
     Indication: DEPRESSION
     Dosage: 40MG PER DAY
     Route: 048
  2. ZYPREXA [Concomitant]
     Indication: SCHIZOPHRENIFORM DISORDER
     Dosage: 2.5MG PER DAY
     Route: 048
  3. RESLIN [Concomitant]
     Indication: SLEEP DISORDER
     Dosage: 150MG PER DAY
     Route: 048

REACTIONS (2)
  - ALTERED STATE OF CONSCIOUSNESS [None]
  - HYPONATRAEMIA [None]
